FAERS Safety Report 23297313 (Version 1)
Quarter: 2023Q4

REPORT INFORMATION
  Report Type: Spontaneous
  Country: DZ (occurrence: DZ)
  Receive Date: 20231214
  Receipt Date: 20231214
  Transmission Date: 20240110
  Serious: Yes (Other)
  Sender: FDA-Public Use
  Company Number: DZ-BIOVITRUM-2023-DZ-020383

PATIENT
  Sex: Male

DRUGS (1)
  1. KINERET [Suspect]
     Active Substance: ANAKINRA
     Indication: Product used for unknown indication

REACTIONS (2)
  - Infection [Unknown]
  - Angina pectoris [Unknown]
